FAERS Safety Report 9106337 (Version 2)
Quarter: 2013Q2

REPORT INFORMATION
  Report Type: Spontaneous
  Country: MX (occurrence: MX)
  Receive Date: 20130221
  Receipt Date: 20130429
  Transmission Date: 20140414
  Serious: Yes (Other)
  Sender: FDA-Public Use
  Company Number: PHHY2012MX073542

PATIENT
  Age: 69 Year
  Sex: Female

DRUGS (2)
  1. EXELON PATCH [Suspect]
     Indication: DEMENTIA ALZHEIMER^S TYPE
     Dosage: 9.5 MG, (PATCH 10 CM2), DAILY
     Route: 062
     Dates: start: 201207
  2. LEVODOPA [Concomitant]
     Indication: PARKINSON^S DISEASE
     Dosage: 4 DF, DAILY
     Dates: start: 201211

REACTIONS (4)
  - Fracture [Not Recovered/Not Resolved]
  - Fall [Not Recovered/Not Resolved]
  - Musculoskeletal discomfort [Not Recovered/Not Resolved]
  - Muscular weakness [Not Recovered/Not Resolved]
